FAERS Safety Report 7842759-7 (Version None)
Quarter: 2011Q4

REPORT INFORMATION
  Report Type: 
  Country: None (occurrence: None)
  Receive Date: 20111025
  Receipt Date: 20110926
  Transmission Date: 20120403
  Serious: Yes (Other)
  Sender: FDA-Public Use
  Company Number: TR-ROCHE-1001685

PATIENT
  Sex: Female

DRUGS (2)
  1. LUCENTIS [Suspect]
     Route: 050
     Dates: start: 20110923
  2. LUCENTIS [Suspect]
     Indication: AGE-RELATED MACULAR DEGENERATION
     Route: 050
     Dates: start: 20090127

REACTIONS (1)
  - BREAST CANCER [None]
